FAERS Safety Report 6561605-5 (Version None)
Quarter: 2010Q1

REPORT INFORMATION
  Report Type: 
  Country: None (occurrence: None)
  Receive Date: 20100130
  Receipt Date: 20091021
  Transmission Date: 20100710
  Serious: No
  Sender: FDA-Public Use
  Company Number: US-ABBOTT-09P-163-0604708-00

PATIENT
  Sex: Female

DRUGS (4)
  1. HUMIRA [Suspect]
     Indication: RHEUMATOID ARTHRITIS
     Dosage: PRE-FILLED SYRINGES
     Route: 058
     Dates: start: 20080401, end: 20081201
  2. HUMIRA [Suspect]
     Dosage: PENS
     Route: 058
     Dates: start: 20081201, end: 20090101
  3. HUMIRA [Suspect]
     Dosage: PRE-FILLED SYRINGES
     Route: 058
     Dates: start: 20090101
  4. METHOTREXATE [Concomitant]
     Indication: RHEUMATOID ARTHRITIS

REACTIONS (1)
  - INJECTION SITE PAIN [None]
